FAERS Safety Report 13495553 (Version 1)
Quarter: 2017Q2

REPORT INFORMATION
  Report Type: Report from Study
  Country: FR (occurrence: FR)
  Receive Date: 20170428
  Receipt Date: 20170428
  Transmission Date: 20170830
  Serious: Yes (Hospitalization, Other)
  Sender: FDA-Public Use
  Company Number: PHHO2015FR016292

PATIENT
  Age: 53 Year
  Sex: Female
  Weight: 56 kg

DRUGS (7)
  1. COMPARATOR METHYLPREDNISOLONE [Concomitant]
     Dosage: 1720 MG, ON D1, D2 AND D3
     Route: 065
     Dates: start: 20130422
  2. BENDAMUSTINE [Suspect]
     Active Substance: BENDAMUSTINE
     Dosage: 113 MG, ON D2 AND D3
     Route: 042
     Dates: start: 20130422, end: 20130717
  3. OFATUMUMAB [Suspect]
     Active Substance: OFATUMUMAB
     Indication: CHRONIC LYMPHOCYTIC LEUKAEMIA
     Dosage: 300 MG, 1 TIME PER 1 CYCLE
     Route: 042
     Dates: start: 20130218, end: 20130218
  4. BENDAMUSTINE [Suspect]
     Active Substance: BENDAMUSTINE
     Indication: CHRONIC LYMPHOCYTIC LEUKAEMIA
     Dosage: 115 MG, ON D2 AND D3
     Route: 042
     Dates: start: 20130225, end: 20130324
  5. COMPARATOR METHYLPREDNISOLONE [Concomitant]
     Dosage: 1600 MG, ON D1, D2 AND D3
     Route: 065
     Dates: start: 20130519, end: 20130715
  6. OFATUMUMAB [Suspect]
     Active Substance: OFATUMUMAB
     Dosage: 1000 MG, 1 TIME PER 1 CYCLE
     Route: 042
     Dates: start: 20130225, end: 20130715
  7. COMPARATOR METHYLPREDNISOLONE [Concomitant]
     Indication: CHRONIC LYMPHOCYTIC LEUKAEMIA
     Dosage: 100 MG, UNK
     Route: 065
     Dates: start: 20130218, end: 20130407

REACTIONS (2)
  - Second primary malignancy [Recovered/Resolved]
  - Cervix carcinoma [Recovered/Resolved]

NARRATIVE: CASE EVENT DATE: 20150701
